FAERS Safety Report 8393996-7 (Version None)
Quarter: 2012Q2

REPORT INFORMATION
  Report Type: 
  Country: None (occurrence: None)
  Receive Date: 20120530
  Receipt Date: 20120516
  Transmission Date: 20120825
  Serious: Yes (Hospitalization, Other)
  Sender: FDA-Public Use
  Company Number: NL-JNJFOC-20110510188

PATIENT
  Age: 93 Year
  Sex: Female

DRUGS (2)
  1. RISPERDAL [Suspect]
     Indication: PRODUCT USED FOR UNKNOWN INDICATION
     Route: 048
  2. RISPERDAL [Suspect]
     Route: 048

REACTIONS (9)
  - RESPIRATION ABNORMAL [None]
  - HYPERHIDROSIS [None]
  - SOMNOLENCE [None]
  - DEPRESSED LEVEL OF CONSCIOUSNESS [None]
  - HYPERNATRAEMIA [None]
  - ACCIDENTAL OVERDOSE [None]
  - PNEUMONIA ASPIRATION [None]
  - HYPOKALAEMIA [None]
  - DYSPHAGIA [None]
